FAERS Safety Report 7329737-1 (Version None)
Quarter: 2011Q1

REPORT INFORMATION
  Report Type: 
  Country: None (occurrence: None)
  Receive Date: 20110303
  Receipt Date: 20110218
  Transmission Date: 20110831
  Serious: No
  Sender: FDA-Public Use
  Company Number: CA-ELI_LILLY_AND_COMPANY-CA201102005196

PATIENT
  Sex: Female
  Weight: 90.703 kg

DRUGS (5)
  1. PROPRANOLOL [Concomitant]
     Dosage: 20 MG, 2/D
     Route: 048
     Dates: start: 20071109
  2. ZYPREXA [Suspect]
     Indication: BIPOLAR DISORDER
     Dosage: 2.5 MG, EACH EVENING
     Dates: start: 19990614, end: 20000405
  3. EFFEXOR XR [Concomitant]
     Dosage: 37.5 MG, DAILY (1/D)
     Route: 048
     Dates: start: 20061025
  4. ZYPREXA [Suspect]
     Dosage: 2.5 MG, 2/D
     Dates: start: 20020117
  5. EPIVAL [Concomitant]
     Dosage: 250 MG, 2/D
     Route: 048
     Dates: start: 20071109

REACTIONS (3)
  - DIABETES MELLITUS [None]
  - RECTAL HAEMORRHAGE [None]
  - VAGINAL HAEMORRHAGE [None]
